FAERS Safety Report 5343432-X (Version None)
Quarter: 2007Q2

REPORT INFORMATION
  Report Type: 
  Country: None (occurrence: None)
  Receive Date: 20070531
  Receipt Date: 20070515
  Transmission Date: 20071010
  Serious: Yes (Disabling)
  Sender: FDA-Public Use
  Company Number: 230317K07CAN

PATIENT
  Sex: Female

DRUGS (1)
  1. REBIF [Suspect]
     Indication: MULTIPLE SCLEROSIS
     Dates: start: 20060726

REACTIONS (3)
  - HYPOAESTHESIA [None]
  - MAJOR DEPRESSION [None]
  - MULTIPLE SCLEROSIS RELAPSE [None]
